FAERS Safety Report 22273804 (Version 1)
Quarter: 2023Q2

REPORT INFORMATION
  Report Type: Spontaneous
  Country: IT (occurrence: IT)
  Receive Date: 20230502
  Receipt Date: 20230502
  Transmission Date: 20230722
  Serious: Yes (Other)
  Sender: FDA-Public Use
  Company Number: IT-ELI_LILLY_AND_COMPANY-IT202304003340

PATIENT
  Age: 59 Year
  Sex: Female

DRUGS (9)
  1. PEMETREXED [Suspect]
     Active Substance: PEMETREXED
     Indication: Pleural mesothelioma
     Dosage: UNK UNK, UNKNOWN (450/750 MG TOTAL).
     Route: 065
     Dates: start: 20210308, end: 20210419
  2. PEMETREXED [Suspect]
     Active Substance: PEMETREXED
     Dosage: UNK UNK, UNKNOWN PEMETREXED (500/750 MG TOTAL)
     Route: 065
     Dates: start: 20210104, end: 20210215
  3. ALIMTA [Suspect]
     Active Substance: PEMETREXED DISODIUM
     Indication: Pleural mesothelioma
     Dosage: UNK UNK, UNKNOWN
     Route: 065
     Dates: start: 20210510, end: 20210607
  4. ALIMTA [Suspect]
     Active Substance: PEMETREXED DISODIUM
     Dosage: 500 MILLIGRAM, UNKNOWN (500/750 MG TOTAL)
     Route: 065
     Dates: start: 20190606, end: 201909
  5. CARBOPLATIN [Suspect]
     Active Substance: CARBOPLATIN
     Indication: Pleural mesothelioma
     Dosage: UNK UNK, UNKNOWN
     Route: 065
     Dates: start: 20210104, end: 20210215
  6. PEMBROLIZUMAB [Suspect]
     Active Substance: PEMBROLIZUMAB
     Indication: Pleural mesothelioma
     Dosage: 200 MILLIGRAM, UNKNOWN
     Route: 065
     Dates: start: 20181010, end: 202006
  7. PANTOPRAZOLE [Concomitant]
     Active Substance: PANTOPRAZOLE
     Indication: Product used for unknown indication
     Dosage: 20 MILLIGRAM, QD
     Route: 065
  8. POLYETHYLENE GLYCOLS [Concomitant]
     Active Substance: POLYETHYLENE GLYCOLS
     Indication: Constipation
     Dosage: UNK UNK, UNKNOWN 1 SACHET
     Route: 065
  9. METFORMIN [Concomitant]
     Active Substance: METFORMIN HYDROCHLORIDE
     Indication: Product used for unknown indication
     Dosage: 850 MILLIGRAM, OTHER 850 MG 1 TABLET AT LUNCH
     Route: 065

REACTIONS (2)
  - Malignant neoplasm progression [Unknown]
  - Nausea [Unknown]
